FAERS Safety Report 8336658-4 (Version None)
Quarter: 2012Q2

REPORT INFORMATION
  Report Type: 
  Country: None (occurrence: None)
  Receive Date: 20120504
  Receipt Date: 20120426
  Transmission Date: 20120825
  Serious: Yes (Hospitalization)
  Sender: FDA-Public Use
  Company Number: US-BAYER-2012-003036

PATIENT
  Age: 44 Year
  Sex: Female
  Weight: 82 kg

DRUGS (4)
  1. YASMIN [Suspect]
     Indication: DYSMENORRHOEA
     Dosage: UNK
     Dates: start: 20060601, end: 20100501
  2. DROSPIRENONE AND ETHINYL ESTRADIOL [Suspect]
     Indication: DYSMENORRHOEA
     Dosage: UNK
     Dates: start: 20060601, end: 20100501
  3. LEXAPRO [Concomitant]
     Indication: DEPRESSION
     Dosage: 10 MG, QD
     Route: 048
  4. VAZOBID [Concomitant]
     Indication: MULTIPLE ALLERGIES
     Dosage: 15 MG DAILY, PRN
     Route: 048

REACTIONS (5)
  - DEPRESSION [None]
  - PAIN [None]
  - ANXIETY [None]
  - THROMBOSIS [None]
  - PULMONARY EMBOLISM [None]
